FAERS Safety Report 8284506-3 (Version None)
Quarter: 2012Q2

REPORT INFORMATION
  Report Type: 
  Country: None (occurrence: None)
  Receive Date: 20120413
  Receipt Date: 20111010
  Transmission Date: 20120825
  Serious: No
  Sender: FDA-Public Use
  Company Number: US-ASTRAZENECA-2011SE59953

PATIENT
  Age: 54 Year
  Sex: Female

DRUGS (2)
  1. PRILOSEC OTC [Concomitant]
  2. NEXIUM [Suspect]
     Route: 048

REACTIONS (4)
  - THERAPEUTIC RESPONSE INCREASED [None]
  - ABDOMINAL DISCOMFORT [None]
  - NAUSEA [None]
  - ABDOMINAL PAIN UPPER [None]
